FAERS Safety Report 24970350 (Version 1)
Quarter: 2025Q1

REPORT INFORMATION
  Report Type: Spontaneous
  Country: CN (occurrence: CN)
  Receive Date: 20250214
  Receipt Date: 20250214
  Transmission Date: 20250408
  Serious: Yes (Other)
  Sender: EXELA PHARMA SCIENCES
  Company Number: CN-EXELAPHARMA-2025EXLA00013

PATIENT
  Age: 1 Day
  Sex: Female

DRUGS (1)
  1. MIDAZOLAM [Suspect]
     Active Substance: MIDAZOLAM
     Indication: Chest tube insertion
     Route: 042

REACTIONS (2)
  - Myoclonus [Recovered/Resolved]
  - Paradoxical drug reaction [Recovered/Resolved]
